FAERS Safety Report 7331009-6 (Version None)
Quarter: 2011Q1

REPORT INFORMATION
  Report Type: 
  Country: None (occurrence: None)
  Receive Date: 20110218
  Receipt Date: 20110207
  Transmission Date: 20110831
  Serious: Yes (Death)
  Sender: FDA-Public Use
  Company Number: 2011SP004217

PATIENT
  Sex: Male

DRUGS (2)
  1. SUGAMMADEX SODIUM [Suspect]
     Indication: NEUROMUSCULAR BLOCKADE REVERSAL
     Dosage: 4 MG/KG;IV
     Route: 042
     Dates: start: 20110127, end: 20110128
  2. ESLAX (ROCURONIUM BROMIDE /01245702/) [Suspect]
     Indication: NEUROMUSCULAR BLOCKING THERAPY
     Dosage: 0.6 MG/KG;IV
     Route: 042
     Dates: start: 20110127, end: 20110127

REACTIONS (1)
  - NEUROMUSCULAR BLOCK PROLONGED [None]
